FAERS Safety Report 17408970 (Version 4)
Quarter: 2021Q3

REPORT INFORMATION
  Report Type: Spontaneous
  Country: US (occurrence: US)
  Receive Date: 20200212
  Receipt Date: 20210723
  Transmission Date: 20211014
  Serious: Yes (Other)
  Sender: FDA-Public Use
  Company Number: US-GILEAD-2020-0450623

PATIENT
  Age: 54 Year
  Sex: Male

DRUGS (21)
  1. ROMAZICON [Concomitant]
     Active Substance: FLUMAZENIL
  2. NORVIR [Concomitant]
     Active Substance: RITONAVIR
  3. ZOVIRAX ACTIVE [Concomitant]
  4. MARIJUANA [Concomitant]
     Active Substance: CANNABIS SATIVA SUBSP. INDICA TOP
  5. SUBLIMAZE [Concomitant]
     Active Substance: FENTANYL CITRATE
  6. NARCAN [Concomitant]
     Active Substance: NALOXONE HYDROCHLORIDE
  7. ZOLPIDEM [Concomitant]
     Active Substance: ZOLPIDEM TARTRATE
  8. TRUVADA [Suspect]
     Active Substance: EMTRICITABINE\TENOFOVIR DISOPROXIL FUMARATE
     Indication: HIV INFECTION
  9. LORAZEPAM. [Concomitant]
     Active Substance: LORAZEPAM
  10. ASPIRIN 81 [Concomitant]
     Active Substance: ASPIRIN
  11. BENADRYL [Concomitant]
     Active Substance: DIPHENHYDRAMINE HYDROCHLORIDE
  12. VERSED [Concomitant]
     Active Substance: MIDAZOLAM HYDROCHLORIDE
  13. ZOFRAN [Concomitant]
     Active Substance: ONDANSETRON HYDROCHLORIDE
  14. ACYCLOVIR ABBOTT VIAL [Concomitant]
  15. VIAGRA [Concomitant]
     Active Substance: SILDENAFIL CITRATE
  16. FLUOROURACIL 5 FU [Concomitant]
     Active Substance: FLUOROURACIL
  17. TRUVADA [Suspect]
     Active Substance: EMTRICITABINE\TENOFOVIR DISOPROXIL FUMARATE
     Indication: PROPHYLAXIS AGAINST HIV INFECTION
     Dosage: 200?300 MG, QD
     Route: 048
     Dates: start: 20090226, end: 2015
  18. VALACYCLOVIR [Concomitant]
     Active Substance: VALACYCLOVIR HYDROCHLORIDE
  19. IMODIUM [Concomitant]
     Active Substance: LOPERAMIDE HYDROCHLORIDE
  20. VALTREX [Concomitant]
     Active Substance: VALACYCLOVIR HYDROCHLORIDE
  21. REYATAZ [Concomitant]
     Active Substance: ATAZANAVIR SULFATE

REACTIONS (10)
  - Multiple fractures [Unknown]
  - Pain [Unknown]
  - Humerus fracture [Recovered/Resolved]
  - Bone density decreased [Unknown]
  - Osteoporosis [Not Recovered/Not Resolved]
  - Economic problem [Unknown]
  - Emotional distress [Unknown]
  - Anxiety [Unknown]
  - Osteopenia [Not Recovered/Not Resolved]
  - Anhedonia [Unknown]

NARRATIVE: CASE EVENT DATE: 20110308
